FAERS Safety Report 15979764 (Version 1)
Quarter: 2019Q1

REPORT INFORMATION
  Report Type: Spontaneous
  Country: US (occurrence: US)
  Receive Date: 20190219
  Receipt Date: 20190219
  Transmission Date: 20190418
  Serious: No
  Sender: FDA-Public Use
  Company Number: US-GLAXOSMITHKLINE-US2019025649

PATIENT
  Sex: Female

DRUGS (2)
  1. FLONASE [Suspect]
     Active Substance: FLUTICASONE PROPIONATE
     Indication: RHINORRHOEA
     Dosage: UNK(SINGLE DOSE)
     Route: 045
     Dates: start: 20190210
  2. FLONASE [Suspect]
     Active Substance: FLUTICASONE PROPIONATE
     Indication: LACRIMATION INCREASED

REACTIONS (4)
  - Product use in unapproved indication [Unknown]
  - Drug ineffective for unapproved indication [Unknown]
  - Incorrect dose administered [Unknown]
  - Off label use [Unknown]
